FAERS Safety Report 11554900 (Version 4)
Quarter: 2015Q4

REPORT INFORMATION
  Report Type: Spontaneous
  Country: US (occurrence: US)
  Receive Date: 20150925
  Receipt Date: 20151230
  Transmission Date: 20160304
  Serious: Yes (Other)
  Sender: FDA-Public Use
  Company Number: US-LUNDBECK-DKLU2004385

PATIENT
  Age: 43 Year
  Sex: Female
  Weight: 45 kg

DRUGS (10)
  1. SABRIL [Suspect]
     Active Substance: VIGABATRIN
     Dosage: FULL DOSE
     Route: 065
     Dates: start: 20150822, end: 20150902
  2. LAMICTAL [Concomitant]
     Active Substance: LAMOTRIGINE
     Indication: PRODUCT USED FOR UNKNOWN INDICATION
     Route: 065
  3. ONFI [Concomitant]
     Active Substance: CLOBAZAM
     Indication: PRODUCT USED FOR UNKNOWN INDICATION
     Route: 065
     Dates: start: 201404
  4. FELBAMATE. [Concomitant]
     Active Substance: FELBAMATE
     Indication: PRODUCT USED FOR UNKNOWN INDICATION
     Route: 065
  5. SABRIL [Suspect]
     Active Substance: VIGABATRIN
     Indication: EPILEPSY
     Route: 065
     Dates: start: 20150815
  6. TRILEPTAL [Concomitant]
     Active Substance: OXCARBAZEPINE
     Indication: PRODUCT USED FOR UNKNOWN INDICATION
     Route: 065
  7. POTIGA [Concomitant]
     Active Substance: EZOGABINE
     Indication: PRODUCT USED FOR UNKNOWN INDICATION
     Route: 065
  8. TRANXENE T-TAB [Concomitant]
     Active Substance: CLORAZEPATE DIPOTASSIUM
     Indication: PRODUCT USED FOR UNKNOWN INDICATION
     Route: 065
  9. PRIMIDONE. [Concomitant]
     Active Substance: PRIMIDONE
     Indication: PRODUCT USED FOR UNKNOWN INDICATION
     Route: 065
  10. SABRIL [Suspect]
     Active Substance: VIGABATRIN
     Indication: COMPLEX PARTIAL SEIZURES
     Route: 065
     Dates: start: 20150807

REACTIONS (7)
  - Amnesia [Unknown]
  - Abasia [Unknown]
  - Seizure [Recovering/Resolving]
  - Aphasia [Unknown]
  - Somnolence [Recovered/Resolved]
  - Weight decreased [Unknown]
  - Eating disorder symptom [Recovering/Resolving]

NARRATIVE: CASE EVENT DATE: 20150828
